FAERS Safety Report 9695183 (Version 4)
Quarter: 2013Q4

REPORT INFORMATION
  Report Type: Spontaneous
  Country: JP (occurrence: JP)
  Receive Date: 20131119
  Receipt Date: 20131203
  Transmission Date: 20140711
  Serious: Yes (Life-Threatening, Hospitalization, Other)
  Sender: FDA-Public Use
  Company Number: JP-BAYER-2013-120129

PATIENT
  Age: 77 Year
  Sex: Male
  Weight: 58 kg

DRUGS (5)
  1. STIVARGA [Suspect]
     Indication: COLORECTAL CANCER
     Dosage: 160 MG, QD
     Route: 048
     Dates: start: 20130902, end: 20130914
  2. OXALIPLATIN [Concomitant]
     Dosage: UNK
     Dates: start: 201207
  3. NORVASC [Concomitant]
     Dosage: DAILY DOSE 5 MG
     Route: 048
  4. PANTETHINE [Concomitant]
     Indication: CONSTIPATION PROPHYLAXIS
     Dosage: DAILY DOSE 200 MG
     Route: 048
  5. HIRUDOID [Concomitant]
     Indication: PROPHYLAXIS
     Route: 061

REACTIONS (6)
  - Disseminated intravascular coagulation [Recovered/Resolved]
  - Platelet count decreased [Recovered/Resolved]
  - Hepatic function abnormal [Unknown]
  - Diarrhoea [Recovered/Resolved]
  - Decreased appetite [Recovered/Resolved]
  - Neuropathy peripheral [Recovering/Resolving]
